FAERS Safety Report 24984223 (Version 1)
Quarter: 2025Q1

REPORT INFORMATION
  Report Type: Spontaneous
  Country: CA (occurrence: CA)
  Receive Date: 20250219
  Receipt Date: 20250219
  Transmission Date: 20250409
  Serious: Yes (Hospitalization)
  Sender: CSL BEHRING
  Company Number: CA-BEH-2025195864

PATIENT
  Age: 78 Year
  Sex: Female
  Weight: 54 kg

DRUGS (1)
  1. HUMAN IMMUNOGLOBULIN G [Suspect]
     Active Substance: HUMAN IMMUNOGLOBULIN G
     Indication: Primary immunodeficiency syndrome
     Dosage: 10 G, QW(1 EVERY 1 WEEK)
     Route: 058

REACTIONS (2)
  - Palliative care [Unknown]
  - Off label use [Unknown]
